APPROVED DRUG PRODUCT: GLIMEPIRIDE
Active Ingredient: GLIMEPIRIDE
Strength: 3MG
Dosage Form/Route: TABLET;ORAL
Application: A077366 | Product #001
Applicant: RANBAXY LABORATORIES LTD
Approved: Oct 6, 2005 | RLD: No | RS: No | Type: DISCN